FAERS Safety Report 5638792-6 (Version None)
Quarter: 2008Q1

REPORT INFORMATION
  Report Type: 
  Country: None (occurrence: None)
  Receive Date: 20080226
  Receipt Date: 20080213
  Transmission Date: 20080703
  Serious: Yes (Hospitalization)
  Sender: FDA-Public Use
  Company Number: AU-JNJFOC-20080205506

PATIENT
  Age: 39 Year
  Sex: Female

DRUGS (2)
  1. TRAMAL [Suspect]
     Indication: PAIN
     Route: 065
  2. ZOLOFT [Interacting]
     Indication: DRUG USE FOR UNKNOWN INDICATION
     Route: 065

REACTIONS (4)
  - COLD SWEAT [None]
  - DRUG INTERACTION [None]
  - HEMIPARESIS [None]
  - SEROTONIN SYNDROME [None]
